FAERS Safety Report 20433304 (Version 1)
Quarter: 2022Q1

REPORT INFORMATION
  Report Type: Spontaneous
  Country: US (occurrence: US)
  Receive Date: 20220205
  Receipt Date: 20220205
  Transmission Date: 20220423
  Serious: Yes (Hospitalization, Other)
  Sender: FDA-Public Use
  Company Number: US-SA-SAC20220131000925

PATIENT
  Age: 51 Year
  Sex: Male
  Weight: 78.47 kg

DRUGS (1)
  1. CAPRELSA [Suspect]
     Active Substance: VANDETANIB
     Indication: Thyroid cancer
     Dosage: 300 MG, QD
     Route: 048
     Dates: start: 20180123

REACTIONS (2)
  - Myocardial infarction [Unknown]
  - Pneumonia [Unknown]

NARRATIVE: CASE EVENT DATE: 20211231
